FAERS Safety Report 4978261-X (Version None)
Quarter: 2006Q2

REPORT INFORMATION
  Report Type: 
  Country: None (occurrence: None)
  Receive Date: 20060420
  Receipt Date: 20060417
  Transmission Date: 20061013
  Serious: Yes (Other)
  Sender: FDA-Public Use
  Company Number: US-GLAXOSMITHKLINE-A0602052A

PATIENT
  Age: 8 Year
  Sex: Male

DRUGS (1)
  1. AQUAFRESH KIDS TOOTHPASTE PUMP [Suspect]
     Indication: DENTAL CLEANING
     Dates: start: 20060416, end: 20060416

REACTIONS (2)
  - ANAPHYLACTIC SHOCK [None]
  - URTICARIA [None]
